FAERS Safety Report 8052687-2 (Version None)
Quarter: 2012Q1

REPORT INFORMATION
  Report Type: 
  Country: None (occurrence: None)
  Receive Date: 20120118
  Receipt Date: 20120118
  Transmission Date: 20120608
  Serious: Yes (Hospitalization)
  Sender: FDA-Public Use
  Company Number: None

PATIENT
  Sex: Female
  Weight: 60 kg

DRUGS (24)
  1. PRILOSEC [Concomitant]
  2. BUTRANS [Concomitant]
  3. DULOXETIME HYDROCHLORIDE [Concomitant]
  4. IBUPROFEN [Concomitant]
  5. ROIBITUSSIN [Concomitant]
  6. ADVAIR DISKUS 100/50 [Concomitant]
     Indication: ASTHMA
  7. RESTORIL [Concomitant]
  8. SENNA [Concomitant]
  9. MULTI-VITAMIN [Concomitant]
  10. THEOPHYLLINE [Suspect]
     Indication: BRONCHIECTASIS
     Dosage: 400 MG
     Route: 048
  11. ASPIRIN [Concomitant]
  12. POTASSIUM CHLORIDE [Concomitant]
  13. COZAAR [Concomitant]
  14. LANTUS [Concomitant]
  15. DUONEB [Concomitant]
  16. CALCIUM PLUS D [Concomitant]
  17. XANAX [Concomitant]
  18. SODIUM CHLORIDE [Concomitant]
  19. BUPROPION HYDROCHLORIDE [Concomitant]
  20. COMBIVENT [Concomitant]
  21. LIPITOR [Concomitant]
  22. PREGABALIN [Concomitant]
  23. LIDODERM [Concomitant]
  24. ACETAMINOPHEN [Concomitant]

REACTIONS (5)
  - CHEST DISCOMFORT [None]
  - TOXICITY TO VARIOUS AGENTS [None]
  - VOMITING [None]
  - HEADACHE [None]
  - NAUSEA [None]
